FAERS Safety Report 5107895-7 (Version None)
Quarter: 2006Q3

REPORT INFORMATION
  Report Type: 
  Country: None (occurrence: None)
  Receive Date: 20060919
  Receipt Date: 20060808
  Transmission Date: 20061208
  Serious: Yes (Death, Other)
  Sender: FDA-Public Use
  Company Number: CH-AVENTIS-200618234GDDC

PATIENT
  Age: 12 Year
  Sex: Male

DRUGS (6)
  1. EXTENCILLINE [Suspect]
     Indication: CARDIAC DISORDER
     Route: 030
     Dates: end: 20060804
  2. EXTENCILLINE [Suspect]
     Indication: RHEUMATIC FEVER
     Route: 030
     Dates: end: 20060804
  3. LASIX [Suspect]
     Dates: start: 20060724, end: 20060804
  4. ALDACTONE [Concomitant]
     Dates: end: 20060804
  5. CORDARONE [Concomitant]
     Dates: start: 20060715, end: 20060804
  6. RENITEN                            /00574902/ [Concomitant]
     Dosage: DOSE: O.8

REACTIONS (5)
  - CARDIO-RESPIRATORY ARREST [None]
  - GAZE PALSY [None]
  - HYPOCALCAEMIA [None]
  - HYPOKALAEMIA [None]
  - LOSS OF CONSCIOUSNESS [None]
